FAERS Safety Report 4555166-X (Version None)
Quarter: 2004Q4

REPORT INFORMATION
  Report Type: 
  Country: None (occurrence: None)
  Receive Date: 20041217
  Receipt Date: 20040805
  Transmission Date: 20050328
  Serious: No
  Sender: FDA-Public Use
  Company Number: 2004-BP-05793BP

PATIENT
  Age: 74 Year
  Sex: Male
  Weight: 97.52 kg

DRUGS (9)
  1. SPIRIVA [Suspect]
     Indication: EMPHYSEMA
     Dosage: 18 MCG (18 MCG), IH
     Route: 055
     Dates: start: 20040707
  2. SPIRIVA [Suspect]
  3. ALBUTEROL [Concomitant]
  4. ATROVENT [Concomitant]
  5. ALBUTEROL/IPRATROPIUM (SALBUTAMOL W/IPRATROPIUM) [Concomitant]
  6. WATER PILLS (AQUA-BAN) [Concomitant]
  7. ALLERGY MEDICATION (ALLERGY MEDICATION) [Concomitant]
  8. POTASSIUM (POTASSIUM) [Concomitant]
  9. SALMETEROL DISKUS (SALMETEROL) [Concomitant]

REACTIONS (1)
  - DRUG INEFFECTIVE [None]
